FAERS Safety Report 4735214-4 (Version None)
Quarter: 2005Q3

REPORT INFORMATION
  Report Type: 
  Country: None (occurrence: None)
  Receive Date: 20050805
  Receipt Date: 20050727
  Transmission Date: 20060218
  Serious: Yes (Other)
  Sender: FDA-Public Use
  Company Number: US-ABBOTT-05P-163-0306860-00

PATIENT
  Sex: Female
  Weight: 64.468 kg

DRUGS (5)
  1. SYNTHROID [Suspect]
     Indication: THYROID GLAND CANCER
     Route: 048
     Dates: start: 19890101, end: 20050501
  2. SYNTHROID [Suspect]
     Indication: HYPOTHYROIDISM
     Route: 048
     Dates: start: 20050501, end: 20050627
  3. SYNTHROID [Suspect]
     Route: 048
     Dates: start: 20050627
  4. CALCIUM GLUCONATE [Concomitant]
     Indication: MINERAL SUPPLEMENTATION
     Route: 048
     Dates: start: 20030501
  5. MULTI-VITAMINS [Concomitant]
     Indication: VITAMIN SUPPLEMENTATION
     Route: 048
     Dates: start: 20030501

REACTIONS (4)
  - FOOD CRAVING [None]
  - INCREASED APPETITE [None]
  - THYROID GLAND CANCER [None]
  - WEIGHT INCREASED [None]
